FAERS Safety Report 4722368-9 (Version None)
Quarter: 2005Q3

REPORT INFORMATION
  Report Type: 
  Country: None (occurrence: None)
  Receive Date: 20050722
  Receipt Date: 20050315
  Transmission Date: 20060218
  Serious: No
  Sender: FDA-Public Use
  Company Number: US-GLAXOSMITHKLINE-A0549835A

PATIENT
  Age: 39 Year
  Sex: Female

DRUGS (17)
  1. AVANDIA [Suspect]
     Dosage: 8MG PER DAY
     Route: 048
     Dates: start: 20041201
  2. ADVAIR DISKUS 100/50 [Suspect]
     Dosage: 1PUFF TWICE PER DAY
     Route: 055
  3. SPIRIVA [Concomitant]
  4. ASMACORT [Concomitant]
  5. COMBIVENT [Concomitant]
  6. ALBUTEROL [Concomitant]
  7. VERELAN [Concomitant]
  8. LOPID [Concomitant]
  9. RANITIDINE [Concomitant]
  10. PROVERA [Concomitant]
  11. ASPIRIN [Concomitant]
  12. MUCINEX [Concomitant]
  13. DEXAMETHASONE [Concomitant]
  14. AMOXICILLIN [Concomitant]
  15. UNKNOWN MEDICATION [Concomitant]
  16. ALEVE [Concomitant]
  17. ALLEGRA [Concomitant]

REACTIONS (7)
  - ASTHMA [None]
  - BLOOD GLUCOSE DECREASED [None]
  - BLOOD GLUCOSE INCREASED [None]
  - BLOOD PRESSURE DECREASED [None]
  - FALL [None]
  - LARYNGITIS [None]
  - UPPER RESPIRATORY TRACT INFECTION [None]
